FAERS Safety Report 7230370-0 (Version None)
Quarter: 2011Q1

REPORT INFORMATION
  Report Type: 
  Country: None (occurrence: None)
  Receive Date: 20110118
  Receipt Date: 20110107
  Transmission Date: 20110831
  Serious: Yes (Death, Life-Threatening, Hospitalization)
  Sender: FDA-Public Use
  Company Number: FR-JNJFOC-20101006540

PATIENT
  Age: 76 Year
  Sex: Female

DRUGS (10)
  1. SOLU-MEDROL [Suspect]
     Indication: SCLERITIS
  2. ARAVA [Concomitant]
     Indication: RHEUMATOID ARTHRITIS
     Route: 048
  3. SOLU-MEDROL [Suspect]
     Indication: RHEUMATOID ARTHRITIS
  4. SOLU-MEDROL [Suspect]
  5. SOLU-MEDROL [Suspect]
  6. CORTANCYL [Suspect]
     Indication: SCLERITIS
     Route: 048
  7. CORDARONE [Concomitant]
     Indication: ARRHYTHMIA
     Route: 048
  8. CORDARONE [Concomitant]
     Route: 048
  9. REMICADE [Suspect]
     Indication: RHEUMATOID ARTHRITIS
     Route: 042
  10. CORTANCYL [Suspect]
     Indication: RHEUMATOID ARTHRITIS
     Route: 048

REACTIONS (4)
  - MULTI-ORGAN FAILURE [None]
  - PNEUMOCYSTIS JIROVECI PNEUMONIA [None]
  - CANDIDIASIS [None]
  - ACUTE RESPIRATORY DISTRESS SYNDROME [None]
